FAERS Safety Report 13647955 (Version 2)
Quarter: 2017Q2

REPORT INFORMATION
  Report Type: Spontaneous
  Country: DE (occurrence: DE)
  Receive Date: 20170613
  Receipt Date: 20170619
  Transmission Date: 20170830
  Serious: Yes (Other)
  Sender: FDA-Public Use
  Company Number: DE-PFIZER INC-2017252954

PATIENT
  Age: 26 Year
  Sex: Female
  Weight: 78.8 kg

DRUGS (2)
  1. DETRUSITOL [Suspect]
     Active Substance: TOLTERODINE TARTRATE
     Indication: ENURESIS
     Dosage: 2 MG, UNK
     Route: 048
     Dates: end: 20160729
  2. DETRUSITOL [Suspect]
     Active Substance: TOLTERODINE TARTRATE
     Dosage: 4 MG, UNK
     Route: 048
     Dates: start: 20160801, end: 2016

REACTIONS (2)
  - Oligohydramnios [Unknown]
  - Abdominal pain lower [Unknown]
